FAERS Safety Report 4991454-0 (Version None)
Quarter: 2006Q2

REPORT INFORMATION
  Report Type: 
  Country: None (occurrence: None)
  Receive Date: 20060501
  Receipt Date: 20060501
  Transmission Date: 20061013
  Serious: Yes (Other)
  Sender: FDA-Public Use
  Company Number: None

PATIENT
  Age: 55 Year
  Sex: Female
  Weight: 78.0187 kg

DRUGS (6)
  1. SUCCINYLCHOLINE [Suspect]
     Indication: ANAESTHESIA
     Dosage: IV
     Route: 042
     Dates: start: 20060421, end: 20060421
  2. LOTREL [Concomitant]
  3. HYDROCHLOROTHIAZIDE [Concomitant]
  4. LEVAQUIN [Concomitant]
  5. CIPRO [Concomitant]
  6. VERSED [Concomitant]

REACTIONS (12)
  - CHILLS [None]
  - DYSSTASIA [None]
  - EYE PAIN [None]
  - HEADACHE [None]
  - HYPERAESTHESIA [None]
  - INFLUENZA [None]
  - MIGRAINE [None]
  - MOVEMENT DISORDER [None]
  - MYALGIA [None]
  - PHOTOPHOBIA [None]
  - POST PROCEDURAL COMPLICATION [None]
  - SENSATION OF HEAVINESS [None]
